FAERS Safety Report 11211990 (Version 2)
Quarter: 2015Q3

REPORT INFORMATION
  Report Type: Report from Study
  Country: ZA (occurrence: ZA)
  Receive Date: 20150623
  Receipt Date: 20150702
  Transmission Date: 20151125
  Serious: Yes (Hospitalization)
  Sender: FDA-Public Use
  Company Number: ZA-NOVOPROD-452761

PATIENT
  Age: 77 Year
  Sex: Female

DRUGS (2)
  1. METFORMIN [Concomitant]
     Active Substance: METFORMIN HYDROCHLORIDE
     Indication: PRODUCT USED FOR UNKNOWN INDICATION
     Dosage: UNK
     Route: 065
  2. INSULATARD FLEXPEN HM(GE) [Suspect]
     Active Substance: INSULIN NOS
     Indication: TYPE 2 DIABETES MELLITUS
     Dosage: 16 IU, QD  (NIGHT TIME)
     Route: 065
     Dates: start: 2000

REACTIONS (5)
  - Hyperhidrosis [Unknown]
  - Vomiting [Unknown]
  - Pruritus [Not Recovered/Not Resolved]
  - Blood glucose abnormal [Unknown]
  - Rash generalised [Not Recovered/Not Resolved]

NARRATIVE: CASE EVENT DATE: 20150327
